FAERS Safety Report 6430111-0 (Version None)
Quarter: 2009Q4

REPORT INFORMATION
  Report Type: 
  Country: None (occurrence: None)
  Receive Date: 20091106
  Receipt Date: 20091028
  Transmission Date: 20100525
  Serious: Yes (Hospitalization)
  Sender: FDA-Public Use
  Company Number: JP-ASTRAZENECA-2009SE24105

PATIENT
  Age: 87 Year
  Sex: Female

DRUGS (7)
  1. CARBOCAIN [Suspect]
     Indication: LOCAL ANAESTHESIA
     Dosage: DOSE UNKNOWN
     Route: 030
  2. CARBOCAIN [Suspect]
     Dosage: DOSE UNKNOWN, THREE WEEKS LATER THAN THE FIRST TREATMENT
     Route: 030
  3. VOLTAREN [Concomitant]
     Dosage: DOSE UNKNOWN
     Route: 054
  4. VOLTAREN [Concomitant]
     Dosage: DOSE UNKNOWN, THREE WEEKS LATER THAN THE FIRST TREATMENT
     Route: 054
  5. CEFCAPENE PIVOXIL HYDROCHLORIDE [Concomitant]
     Dosage: DOSE UNKNOWN
     Route: 048
  6. INTRAARTICULAR STEROID INJECTION [Concomitant]
     Dosage: DOSE UNKNOWN
     Route: 014
  7. INTRAARTICULAR STEROID INJECTION [Concomitant]
     Dosage: DOSE UNKNOWN, THREE WEEKS LATER THAN THE FIRST TREATMENT
     Route: 014

REACTIONS (5)
  - CEREBRAL INFARCTION [None]
  - DISSEMINATED INTRAVASCULAR COAGULATION [None]
  - RENAL FAILURE [None]
  - SHOCK [None]
  - TOXIC EPIDERMAL NECROLYSIS [None]
